FAERS Safety Report 8910057 (Version 2)
Quarter: 2013Q1

REPORT INFORMATION
  Report Type: Spontaneous
  Country: US (occurrence: US)
  Receive Date: 20121115
  Receipt Date: 20130119
  Transmission Date: 20140127
  Serious: No
  Sender: FDA-Public Use
  Company Number: US-009507513-1211USA004050

PATIENT
  Age: 64 None
  Sex: Female

DRUGS (2)
  1. NASONEX [Suspect]
     Dosage: UNK
     Route: 055
     Dates: start: 20120808
  2. NASONEX [Suspect]
     Dosage: UNK
     Route: 055
     Dates: start: 2012

REACTIONS (2)
  - Nasal congestion [Not Recovered/Not Resolved]
  - Product odour abnormal [Unknown]
